FAERS Safety Report 24105653 (Version 1)
Quarter: 2024Q3

REPORT INFORMATION
  Report Type: Spontaneous
  Country: US (occurrence: US)
  Receive Date: 20240717
  Receipt Date: 20240717
  Transmission Date: 20241017
  Serious: No
  Sender: SANOFI AVENTIS
  Company Number: US-SA-SAC20240711000524

PATIENT
  Age: 20 Year
  Sex: Female

DRUGS (1)
  1. DUPILUMAB [Suspect]
     Active Substance: DUPILUMAB
     Indication: Dermatitis atopic
     Dosage: UNK
     Route: 058
     Dates: start: 20240507

REACTIONS (4)
  - Psoriasis [Recovering/Resolving]
  - Drug eruption [Recovering/Resolving]
  - Dermatitis atopic [Recovering/Resolving]
  - Erythrodermic atopic dermatitis [Recovering/Resolving]

NARRATIVE: CASE EVENT DATE: 20240101
